FAERS Safety Report 5833866-9 (Version None)
Quarter: 2008Q3

REPORT INFORMATION
  Report Type: 
  Country: None (occurrence: None)
  Receive Date: 20080805
  Receipt Date: 20080725
  Transmission Date: 20090109
  Serious: Yes (Other)
  Sender: FDA-Public Use
  Company Number: PL-ROCHE-578786

PATIENT
  Age: 40 Year
  Sex: Male

DRUGS (2)
  1. INTERFERON ALFA-2A [Suspect]
     Route: 065
  2. RIBAVIRIN [Suspect]
     Dosage: DOSES INDIVIDUALLY TAILORED AS PER BODY MASS
     Route: 048

REACTIONS (1)
  - DEPRESSION [None]
